FAERS Safety Report 6939397-7 (Version None)
Quarter: 2010Q3

REPORT INFORMATION
  Report Type: 
  Country: None (occurrence: None)
  Receive Date: 20100824
  Receipt Date: 20100518
  Transmission Date: 20110219
  Serious: No
  Sender: FDA-Public Use
  Company Number: A0860231A

PATIENT
  Age: 71 Year
  Sex: Female

DRUGS (8)
  1. ARZERRA [Suspect]
     Dosage: 2000MG WEEKLY
     Route: 042
     Dates: start: 20100501
  2. ACYCLOVIR [Concomitant]
  3. LEXAPRO [Concomitant]
  4. BACTRIM [Concomitant]
  5. LASIX [Concomitant]
  6. HYDROXYZINE [Concomitant]
  7. AZITHROMYCIN [Concomitant]
  8. LEVAQUIN [Concomitant]

REACTIONS (1)
  - RASH [None]
